FAERS Safety Report 16376643 (Version 5)
Quarter: 2020Q4

REPORT INFORMATION
  Report Type: Report from Study
  Country: None (occurrence: NL)
  Receive Date: 20190531
  Receipt Date: 20201020
  Transmission Date: 20210113
  Serious: Yes (Other)
  Sender: FDA-Public Use
  Company Number: NL-ABBVIE-19S-114-2800932-00

PATIENT
  Age: 69 Year
  Sex: Male

DRUGS (7)
  1. MADOPAR [Concomitant]
     Active Substance: BENSERAZIDE HYDROCHLORIDE\LEVODOPA
     Indication: PARKINSON^S DISEASE
     Dosage: 125 MG TWICE
  2. DUODOPA [Suspect]
     Active Substance: CARBIDOPA\LEVODOPA
     Dosage: MD 11.7 CD 3.8 ED 2.5, CONTINUOUS DOSE INCREASED FROM 3.5 ML TO 3.8 ML
     Route: 050
  3. DUODOPA [Suspect]
     Active Substance: CARBIDOPA\LEVODOPA
     Dosage: MD: 11.7, CD: 3.8, ED: 2.5
     Route: 050
  4. DUODOPA [Suspect]
     Active Substance: CARBIDOPA\LEVODOPA
     Dosage: MD: 11.7, CD: 4.0, ED: 2.5
     Route: 050
  5. DUODOPA [Suspect]
     Active Substance: CARBIDOPA\LEVODOPA
     Dosage: MD: 11.7, CD: 3.8, ED: 2.5
     Route: 050
  6. DUODOPA [Suspect]
     Active Substance: CARBIDOPA\LEVODOPA
     Dosage: MD 11.7 ML; CD 4.0 ML/H; ED 2.5 ML?REMAINS AT 16 HOURS
     Route: 050
  7. DUODOPA [Suspect]
     Active Substance: CARBIDOPA\LEVODOPA
     Indication: PARKINSON^S DISEASE
     Route: 050
     Dates: start: 20080404

REACTIONS (11)
  - Bradykinesia [Not Recovered/Not Resolved]
  - On and off phenomenon [Recovering/Resolving]
  - Dysstasia [Not Recovered/Not Resolved]
  - Prostatic operation [Recovering/Resolving]
  - Incontinence [Recovering/Resolving]
  - Muscle rigidity [Unknown]
  - Nocturia [Recovering/Resolving]
  - Freezing phenomenon [Recovered/Resolved]
  - Tension [Unknown]
  - Poor quality sleep [Recovered/Resolved]
  - Dyskinesia [Unknown]

NARRATIVE: CASE EVENT DATE: 201905
